FAERS Safety Report 9927054 (Version 3)
Quarter: 2014Q2

REPORT INFORMATION
  Report Type: Report from Study
  Country: JP (occurrence: JP)
  Receive Date: 20140226
  Receipt Date: 20140515
  Transmission Date: 20141212
  Serious: Yes (Death, Hospitalization)
  Sender: FDA-Public Use
  Company Number: JP-ABBVIE-13P-087-1102877-00

PATIENT
  Age: 47 Year
  Sex: Female
  Weight: 46 kg

DRUGS (2)
  1. LEUPLIN SR FOR INJECTION KIT 11.25 MG [Suspect]
     Indication: BREAST CANCER
     Route: 058
     Dates: start: 20120622, end: 20130329
  2. TASUOMIN [Concomitant]
     Indication: BREAST CANCER
     Route: 048
     Dates: start: 20120518, end: 20130516

REACTIONS (2)
  - Breast cancer [Fatal]
  - Breast cancer female [Fatal]
